FAERS Safety Report 4501617-6 (Version None)
Quarter: 2004Q4

REPORT INFORMATION
  Report Type: 
  Country: None (occurrence: None)
  Receive Date: 20040928
  Receipt Date: 20040830
  Transmission Date: 20050328
  Serious: No
  Sender: FDA-Public Use
  Company Number: 04P-163-0271737-00

PATIENT
  Age: 56 Year
  Sex: Female
  Weight: 77.1115 kg

DRUGS (7)
  1. HUMIRA [Suspect]
     Indication: RHEUMATOID ARTHRITIS
     Dosage: 40 MG, 1 IN 2 WK, SUBCUTANEOUS
     Route: 058
     Dates: start: 20040707
  2. METHOTREXATE [Concomitant]
  3. METHYLPREDNISOLONE [Concomitant]
  4. FOLIC ACID [Concomitant]
  5. RALOXIFENE HCL [Concomitant]
  6. ESOMEPRAZOLE [Concomitant]
  7. LEXAPRO [Concomitant]

REACTIONS (4)
  - COUGH [None]
  - DIZZINESS [None]
  - HEADACHE [None]
  - NAUSEA [None]
